FAERS Safety Report 7710170-5 (Version None)
Quarter: 2011Q3

REPORT INFORMATION
  Report Type: 
  Country: None (occurrence: None)
  Receive Date: 20110825
  Receipt Date: 20110823
  Transmission Date: 20111222
  Serious: Yes (Disabling)
  Sender: FDA-Public Use
  Company Number: DK-BAYER-201037560GPV

PATIENT
  Age: 61 Year
  Sex: Male
  Weight: 83 kg

DRUGS (13)
  1. NEORECORMON [Concomitant]
  2. EPOGEN [Concomitant]
  3. GADOLINIUM IN UNSPECIFIED DRUG [Suspect]
     Dates: start: 20020606, end: 20020606
  4. DOTAREM [Suspect]
     Indication: PRODUCT USED FOR UNKNOWN INDICATION
     Route: 042
     Dates: start: 20061003
  5. PREDNISOLONE [Suspect]
     Indication: NEPHROGENIC SYSTEMIC FIBROSIS
     Dates: start: 20020101, end: 20070501
  6. GADOLINIUM IN UNSPECIFIED DRUG [Suspect]
     Dates: start: 20020902, end: 20020902
  7. NORVASC [Concomitant]
  8. COLECALCIFEROL [Concomitant]
  9. METOPROLOL SUCCINATE [Concomitant]
  10. PHOS-EX [Concomitant]
  11. FUROSEMIDE [Concomitant]
  12. APURIN [Concomitant]
  13. ETALPHA [Concomitant]

REACTIONS (19)
  - JOINT RANGE OF MOTION DECREASED [None]
  - ASTHENIA [None]
  - SKIN DISORDER [None]
  - HYPOAESTHESIA [None]
  - MOTOR DYSFUNCTION [None]
  - SKIN INDURATION [None]
  - FATIGUE [None]
  - MUSCULOSKELETAL STIFFNESS [None]
  - PRURITUS [None]
  - ARTHRALGIA [None]
  - OEDEMA PERIPHERAL [None]
  - PAIN [None]
  - PAIN OF SKIN [None]
  - MOBILITY DECREASED [None]
  - APPETITE DISORDER [None]
  - RESTLESS LEGS SYNDROME [None]
  - GAIT DISTURBANCE [None]
  - SKIN DISCOLOURATION [None]
  - NEPHROGENIC SYSTEMIC FIBROSIS [None]
